FAERS Safety Report 8376129-2 (Version None)
Quarter: 2012Q2

REPORT INFORMATION
  Report Type: 
  Country: None (occurrence: None)
  Receive Date: 20120522
  Receipt Date: 20120518
  Transmission Date: 20120825
  Serious: Yes (Other)
  Sender: FDA-Public Use
  Company Number: PHHO2011IT09746

PATIENT
  Sex: Female
  Weight: 80 kg

DRUGS (7)
  1. TASIGNA [Suspect]
     Indication: CHRONIC MYELOID LEUKAEMIA
     Dosage: 300 MG, BID
     Route: 048
     Dates: start: 20101025, end: 20101104
  2. ATENOLOL [Concomitant]
     Indication: HYPERTENSION
     Dosage: 75 MG, UNK
     Dates: start: 20101012, end: 20110605
  3. LEVOTHYROXINE SODIUM [Concomitant]
     Indication: HYPOTHYROIDISM
     Dosage: 125 L/G
     Dates: start: 20101012
  4. ATENOLOL [Concomitant]
     Dosage: UNK
     Dates: start: 20110607
  5. DEURSIL [Concomitant]
     Indication: PROPHYLAXIS
     Dosage: 450 MG, UNK
     Dates: start: 20101012
  6. IRBESARTAN [Concomitant]
     Indication: HYPERTENSION
     Dosage: 150 MG, UNK
     Dates: start: 20101012
  7. ENOXAPARIN SODIUM [Concomitant]
     Indication: VENOUS INSUFFICIENCY
     Dosage: 4000 U, UNK
     Dates: start: 20110515

REACTIONS (1)
  - CARDIAC FIBRILLATION [None]
